FAERS Safety Report 11277376 (Version 1)
Quarter: 2015Q3

REPORT INFORMATION
  Report Type: Spontaneous
  Country: US (occurrence: US)
  Receive Date: 20150716
  Receipt Date: 20150716
  Transmission Date: 20151125
  Serious: Yes (Hospitalization, Other)
  Sender: FDA-Public Use
  Company Number: US-GLAXOSMITHKLINE-US2015102110

PATIENT
  Age: 57 Year
  Sex: Female

DRUGS (6)
  1. ADVAIR DISKUS [Suspect]
     Active Substance: FLUTICASONE PROPIONATE\SALMETEROL XINAFOATE
     Indication: CHRONIC OBSTRUCTIVE PULMONARY DISEASE
     Dosage: 1 PUFF(S), QD
     Route: 055
     Dates: start: 2011, end: 201506
  2. COUMADIN [Concomitant]
     Active Substance: WARFARIN SODIUM
  3. LIPITOR [Concomitant]
     Active Substance: ATORVASTATIN CALCIUM
  4. POTASSIUM [Concomitant]
     Active Substance: POTASSIUM
  5. METOPROLOL [Concomitant]
     Active Substance: METOPROLOL
  6. CARDIZEM [Concomitant]
     Active Substance: DILTIAZEM HYDROCHLORIDE

REACTIONS (11)
  - Atrial fibrillation [Unknown]
  - Peripheral swelling [Unknown]
  - Pneumonia [Recovering/Resolving]
  - Infection [Unknown]
  - Myocardial infarction [Recovering/Resolving]
  - Cardiac operation [Recovering/Resolving]
  - Dyspnoea [Recovering/Resolving]
  - Underdose [Recovered/Resolved]
  - Coronary arterial stent insertion [Recovering/Resolving]
  - Chronic obstructive pulmonary disease [Recovering/Resolving]
  - Heart rate decreased [Unknown]

NARRATIVE: CASE EVENT DATE: 20110331
